FAERS Safety Report 8869288 (Version 1)
Quarter: 2012Q4

REPORT INFORMATION
  Report Type: 
  Country: US (occurrence: US)
  Receive Date: 20121023
  Receipt Date: 20121023
  Transmission Date: 20130627
  Serious: No
  Sender: FDA-Public Use
  Company Number: US-AMGEN-USASP2012053432

PATIENT
  Age: 49 Year
  Sex: Female

DRUGS (1)
  1. ENBREL [Suspect]
     Indication: RHEUMATOID ARTHRITIS
     Dosage: 50 mg
     Route: 058
     Dates: start: 20120608, end: 20120820

REACTIONS (3)
  - Urticaria [Recovering/Resolving]
  - Purulent discharge [Recovering/Resolving]
  - Drug hypersensitivity [Unknown]
